FAERS Safety Report 5648130-0 (Version None)
Quarter: 2008Q1

REPORT INFORMATION
  Report Type: 
  Country: None (occurrence: None)
  Receive Date: 20080229
  Receipt Date: 20080213
  Transmission Date: 20080703
  Serious: Yes (Hospitalization)
  Sender: FDA-Public Use
  Company Number: 024421

PATIENT
  Age: 30 Year
  Sex: Female

DRUGS (14)
  1. SERTRALINE HCL [Suspect]
     Indication: DEPRESSION
     Dosage: 100-150 MG
  2. ALCOHOL(ETHANOL) [Suspect]
  3. COCAINE(COCAINE) [Suspect]
  4. MARIJUANA(CANNABIS) [Suspect]
  5. OXYBUTYNIN CHLORIDE [Concomitant]
  6. TRAZODONE (TRAZDONE) [Concomitant]
  7. BACLOFEN [Concomitant]
  8. CONJUGATED ESTROGENS [Concomitant]
  9. CLONIDINE [Concomitant]
  10. MORPHINE [Concomitant]
  11. DIAZEPAM [Concomitant]
  12. FLUTICASONE PROPIONATE [Concomitant]
  13. METAXALONE (METAXALONE) [Concomitant]
  14. OXYCODONE HCL [Concomitant]

REACTIONS (9)
  - ADJUSTMENT DISORDER [None]
  - DEPRESSED MOOD [None]
  - MENTAL STATUS CHANGES [None]
  - OVERDOSE [None]
  - PSYCHOGENIC PAIN DISORDER [None]
  - REFUSAL OF TREATMENT BY PATIENT [None]
  - SOMNOLENCE [None]
  - SUBSTANCE ABUSE [None]
  - SUICIDAL IDEATION [None]
